FAERS Safety Report 9998198 (Version 2)
Quarter: 2014Q1

REPORT INFORMATION
  Report Type: Report from Study
  Country: MX (occurrence: MX)
  Receive Date: 20140311
  Receipt Date: 20140311
  Transmission Date: 20141002
  Serious: Yes (Other)
  Sender: FDA-Public Use
  Company Number: PHHY2011MX47832

PATIENT
  Age: 79 Year
  Sex: Female

DRUGS (5)
  1. ONBREZ [Suspect]
     Indication: CHRONIC OBSTRUCTIVE PULMONARY DISEASE
     Dosage: 150 UG, QD
     Route: 055
     Dates: start: 20110508, end: 20110530
  2. ONBREZ [Suspect]
     Indication: EMPHYSEMA
  3. MIFLONIDE [Suspect]
     Indication: CHRONIC OBSTRUCTIVE PULMONARY DISEASE
     Dosage: 400 UG, DAILY
     Route: 055
  4. MIFLONIDE [Suspect]
     Indication: EMPHYSEMA
  5. HYDROCHLOROTHIAZIDE [Concomitant]
     Dosage: UNK

REACTIONS (5)
  - Thyroiditis [Recovered/Resolved]
  - Malaise [Recovered/Resolved]
  - Oral pain [Not Recovered/Not Resolved]
  - Neck mass [Unknown]
  - Weight fluctuation [Unknown]
